FAERS Safety Report 11864881 (Version 1)
Quarter: 2015Q4

REPORT INFORMATION
  Report Type: Spontaneous
  Country: FR (occurrence: FR)
  Receive Date: 20151223
  Receipt Date: 20151223
  Transmission Date: 20160305
  Serious: Yes (Other)
  Sender: FDA-Public Use
  Company Number: FR-SA-2015SA210554

PATIENT
  Age: 77 Year
  Sex: Male

DRUGS (19)
  1. LASILIX [Interacting]
     Active Substance: FUROSEMIDE
     Route: 048
     Dates: start: 20141117
  2. TOPALGIC [Concomitant]
     Active Substance: TRAMADOL
     Dosage: 0.5, 3/D
  3. PREVISCAN [Concomitant]
     Active Substance: FLUINDIONE
     Dates: start: 20141106
  4. ORBENINE [Interacting]
     Active Substance: CLOXACILLIN SODIUM
     Indication: STAPHYLOCOCCAL SEPSIS
     Route: 042
     Dates: start: 20141106, end: 20141204
  5. HEPARIN SODIUM PANPHARMA [Concomitant]
     Active Substance: HEPARIN SODIUM
     Indication: PROPHYLAXIS
     Route: 042
     Dates: start: 20141111, end: 20141121
  6. CALCIPARINE [Concomitant]
     Active Substance: HEPARIN CALCIUM
  7. TEMERIT [Concomitant]
     Active Substance: NEBIVOLOL
     Dosage: STRENGTH: 2.5 MG
  8. LANTUS SOLOSTAR [Suspect]
     Active Substance: INSULIN GLARGINE
     Route: 058
     Dates: start: 20141115
  9. LERCANIDIPINE [Concomitant]
     Active Substance: LERCANIDIPINE
     Indication: HYPERTENSION
     Route: 048
     Dates: start: 20141108
  10. NOVORAPID [Interacting]
     Active Substance: INSULIN ASPART
     Route: 058
     Dates: start: 20141114
  11. LOVENOX [Concomitant]
     Active Substance: ENOXAPARIN SODIUM
     Indication: PROPHYLAXIS
     Route: 058
     Dates: start: 20141106, end: 20141110
  12. PREVISCAN [Concomitant]
     Active Substance: FLUINDIONE
  13. COAPROVEL [Concomitant]
     Active Substance: HYDROCHLOROTHIAZIDE\IRBESARTAN
     Dosage: STRENGTH: 300/25
  14. GLUCOPHAGE [Concomitant]
     Active Substance: METFORMIN HYDROCHLORIDE
  15. HYPERIUM [Concomitant]
     Active Substance: RILMENIDINE PHOSPHATE
  16. DOLIPRANE [Concomitant]
     Active Substance: ACETAMINOPHEN
     Dosage: DOSAGE: 1G X 4/DAY
  17. DAFALGAN [Concomitant]
     Active Substance: ACETAMINOPHEN
     Indication: PAIN
     Dosage: STRENGTH: 500 MG
     Route: 048
     Dates: start: 20141106, end: 20141127
  18. SOLOSTAR [Concomitant]
     Active Substance: DEVICE
     Dates: start: 20141115
  19. INEXIUM [Concomitant]
     Active Substance: ESOMEPRAZOLE

REACTIONS (2)
  - Drug interaction [Unknown]
  - Hypokalaemia [Recovering/Resolving]

NARRATIVE: CASE EVENT DATE: 20141109
